FAERS Safety Report 23482378 (Version 2)
Quarter: 2024Q1

REPORT INFORMATION
  Report Type: Spontaneous
  Country: US (occurrence: US)
  Receive Date: 20240205
  Receipt Date: 20240215
  Transmission Date: 20240410
  Serious: Yes (Other)
  Sender: FDA-Public Use
  Company Number: US-BRISTOL-MYERS SQUIBB COMPANY-2024-006392

PATIENT
  Age: 93 Year
  Sex: Male

DRUGS (1)
  1. LENALIDOMIDE [Suspect]
     Active Substance: LENALIDOMIDE
     Indication: Myelodysplastic syndrome
     Route: 048
     Dates: start: 20240111

REACTIONS (5)
  - Haemoglobin decreased [Recovered/Resolved]
  - Pruritus [Recovering/Resolving]
  - Lethargy [Unknown]
  - Product dose omission in error [Recovered/Resolved]
  - Off label use [Unknown]
